FAERS Safety Report 6185464-8 (Version None)
Quarter: 2009Q2

REPORT INFORMATION
  Report Type: 
  Country: None (occurrence: None)
  Receive Date: 20090511
  Receipt Date: 20090427
  Transmission Date: 20091009
  Serious: Yes (Other)
  Sender: FDA-Public Use
  Company Number: PHHY2009DE05766

PATIENT
  Sex: Female
  Weight: 65 kg

DRUGS (3)
  1. ZOMETA [Suspect]
     Indication: METASTASES TO BONE
     Dosage: 4 MG EVERY 4 WEEKS
     Route: 042
     Dates: start: 20060401
  2. TAMOXIFEN CITRATE [Concomitant]
  3. ARIMIDEX [Concomitant]

REACTIONS (3)
  - BIOPSY SITE UNSPECIFIED ABNORMAL [None]
  - DENTAL OPERATION [None]
  - OSTEONECROSIS [None]
